FAERS Safety Report 8272917-1 (Version None)
Quarter: 2012Q2

REPORT INFORMATION
  Report Type: 
  Country: None (occurrence: None)
  Receive Date: 20120406
  Receipt Date: 20120406
  Transmission Date: 20120825
  Serious: Yes (Death)
  Sender: FDA-Public Use
  Company Number: None

PATIENT
  Age: 17 Year
  Sex: Female
  Weight: 56.6996 kg

DRUGS (11)
  1. LOVENOX [Suspect]
     Indication: CATHETER SITE RELATED REACTION
     Dosage: 1 MG SHOT 1ST DAY AT DR'S OFFICE - 60 MG 2X DAILY INJECTION AT HOME 057
     Dates: start: 20100112
  2. LOVENOX [Suspect]
     Indication: THROMBOSIS
     Dosage: 1 MG SHOT 1ST DAY AT DR'S OFFICE - 60 MG 2X DAILY INJECTION AT HOME 057
     Dates: start: 20100112
  3. LOVENOX [Suspect]
     Indication: DEEP VEIN THROMBOSIS
     Dosage: 1 MG SHOT 1ST DAY AT DR'S OFFICE - 60 MG 2X DAILY INJECTION AT HOME 057
     Dates: start: 20100112
  4. LOVENOX [Suspect]
     Indication: CATHETER SITE RELATED REACTION
     Dosage: 1 MG SHOT 1ST DAY AT DR'S OFFICE - 60 MG 2X DAILY INJECTION AT HOME 057
     Dates: start: 20100105
  5. LOVENOX [Suspect]
     Indication: THROMBOSIS
     Dosage: 1 MG SHOT 1ST DAY AT DR'S OFFICE - 60 MG 2X DAILY INJECTION AT HOME 057
     Dates: start: 20100105
  6. LOVENOX [Suspect]
     Indication: DEEP VEIN THROMBOSIS
     Dosage: 1 MG SHOT 1ST DAY AT DR'S OFFICE - 60 MG 2X DAILY INJECTION AT HOME 057
     Dates: start: 20100105
  7. FENTANYL-100 [Concomitant]
  8. FEMODAR [Concomitant]
  9. SYNTHROID (DID NOT ADD TO ADVERSE EVENT) [Concomitant]
  10. XELODA [Concomitant]
  11. ZOMETA [Concomitant]

REACTIONS (7)
  - HAEMATOMA [None]
  - CEREBRAL HAEMORRHAGE [None]
  - CEREBROVASCULAR ACCIDENT [None]
  - HEAD INJURY [None]
  - ASTHENIA [None]
  - FALL [None]
  - COMA [None]
